FAERS Safety Report 11037459 (Version 1)
Quarter: 2015Q2

REPORT INFORMATION
  Report Type: Spontaneous
  Country: US (occurrence: None)
  Receive Date: 20150415
  Receipt Date: 20150415
  Transmission Date: 20150821
  Serious: No
  Sender: FDA-Public Use
  Company Number: None

PATIENT
  Age: 64 Year
  Sex: Female

DRUGS (1)
  1. NEXAVAR [Suspect]
     Active Substance: SORAFENIB
     Indication: NEUROENDOCRINE CARCINOMA
     Dosage: NEXAVAR 400MG, BID, PO??
     Route: 048
     Dates: start: 20150224, end: 20150414

REACTIONS (4)
  - Diarrhoea [None]
  - Feeling abnormal [None]
  - Alopecia [None]
  - Weight decreased [None]
